FAERS Safety Report 11335391 (Version 1)
Quarter: 2015Q3

REPORT INFORMATION
  Report Type: Report from Study
  Country: US (occurrence: US)
  Receive Date: 20150804
  Receipt Date: 20150804
  Transmission Date: 20151125
  Serious: Yes (Hospitalization)
  Sender: FDA-Public Use
  Company Number: US-EISAI MEDICAL RESEARCH-EC-2015-006657

PATIENT
  Age: 63 Year
  Sex: Female
  Weight: 108.1 kg

DRUGS (21)
  1. AMPYRA [Concomitant]
     Active Substance: DALFAMPRIDINE
     Route: 048
     Dates: start: 201308
  2. OMGEGA 3^S [Concomitant]
     Route: 048
     Dates: start: 1995
  3. MAGMIND MAGNESIUM [Concomitant]
     Route: 048
     Dates: start: 2000
  4. EVERYDAY CALCIUM [Concomitant]
     Route: 048
     Dates: start: 1995
  5. METFORMIN [Concomitant]
     Active Substance: METFORMIN HYDROCHLORIDE
     Route: 048
     Dates: start: 2000
  6. TECFIDERA [Concomitant]
     Active Substance: DIMETHYL FUMARATE
     Route: 048
     Dates: start: 201306
  7. DIAZEPAM. [Concomitant]
     Active Substance: DIAZEPAM
     Route: 048
     Dates: start: 201212
  8. LORCASERIN [Suspect]
     Active Substance: LORCASERIN HYDROCHLORIDE
     Indication: WEIGHT CONTROL
     Route: 048
     Dates: start: 20150205, end: 20150418
  9. ALPHA LIPOIC ACID [Concomitant]
     Active Substance: .ALPHA.-LIPOIC ACID
     Route: 048
     Dates: start: 2013
  10. 7 KETO ENZYMES [Concomitant]
     Route: 048
     Dates: start: 2013
  11. COENZYMATED RAW B^S [Concomitant]
     Route: 048
     Dates: start: 2013
  12. GINKO BILOBA [Concomitant]
     Active Substance: GINKGO
     Route: 048
     Dates: start: 2014
  13. ZETIA [Concomitant]
     Active Substance: EZETIMIBE
     Route: 048
     Dates: start: 201411
  14. VITAMIN B1 WITH LIVER EXTRACT [Concomitant]
     Route: 058
     Dates: start: 201501
  15. LOSARTAN POTASSIUM. [Concomitant]
     Active Substance: LOSARTAN POTASSIUM
     Route: 048
     Dates: start: 201410
  16. DHEA [Concomitant]
     Active Substance: PRASTERONE
     Route: 048
     Dates: start: 2013
  17. METOPROLOL [Concomitant]
     Active Substance: METOPROLOL
     Route: 048
     Dates: start: 201411
  18. AGGRENOX [Concomitant]
     Active Substance: ASPIRIN\DIPYRIDAMOLE
     Route: 048
     Dates: start: 2011
  19. VITAMIN D3 [Concomitant]
     Active Substance: CHOLECALCIFEROL
     Route: 048
     Dates: start: 2011
  20. SUPER ENZYMES [Concomitant]
     Route: 048
     Dates: start: 201301
  21. TRAMADOL. [Concomitant]
     Active Substance: TRAMADOL
     Route: 048
     Dates: start: 2011

REACTIONS (1)
  - Atrial fibrillation [Recovered/Resolved]

NARRATIVE: CASE EVENT DATE: 20150418
